FAERS Safety Report 9908672 (Version 1)
Quarter: 2014Q1

REPORT INFORMATION
  Report Type: Spontaneous
  Country: US (occurrence: None)
  Receive Date: 20140214
  Receipt Date: 20140214
  Transmission Date: 20141002
  Serious: Yes (Hospitalization)
  Sender: FDA-Public Use
  Company Number: None

PATIENT
  Age: 84 Year
  Sex: Female
  Weight: 65 kg

DRUGS (14)
  1. BONIVA [Suspect]
     Indication: OSTEOPOROSIS
     Dosage: CHRONIC
     Route: 048
  2. OXYBUTYNIN [Concomitant]
  3. CYMBALTA [Concomitant]
  4. COREG [Concomitant]
  5. REMERON [Concomitant]
  6. LIPITOR [Concomitant]
  7. LEVOTHYROXINE [Concomitant]
  8. GLIPIZIDE [Concomitant]
  9. LISINOPRIL [Concomitant]
  10. HCTZ [Concomitant]
  11. LASIX [Concomitant]
  12. KCL [Concomitant]
  13. CENTRUM [Concomitant]
  14. PROTONIX [Concomitant]

REACTIONS (3)
  - Oesophagitis [None]
  - Upper gastrointestinal haemorrhage [None]
  - Haemorrhagic anaemia [None]
